FAERS Safety Report 5210148-X (Version None)
Quarter: 2006Q4

REPORT INFORMATION
  Report Type: 
  Country: None (occurrence: None)
  Receive Date: 20061103
  Receipt Date: 20060707
  Transmission Date: 20070319
  Serious: No
  Sender: FDA-Public Use
  Company Number: FACT0600292

PATIENT
  Age: 28 Year
  Sex: Male
  Weight: 74.8 kg

DRUGS (2)
  1. FACTIVE [Suspect]
     Indication: RESPIRATORY TRACT INFECTION BACTERIAL
     Dosage: 320 MG, QD, ORAL
     Route: 048
  2. EXCEDRIN (MIGRAINE) [Concomitant]

REACTIONS (1)
  - SWELLING FACE [None]
